FAERS Safety Report 12877297 (Version 1)
Quarter: 2016Q4

REPORT INFORMATION
  Report Type: Spontaneous
  Country: US (occurrence: US)
  Receive Date: 20161024
  Receipt Date: 20161024
  Transmission Date: 20170207
  Serious: Yes (Hospitalization)
  Sender: FDA-Public Use
  Company Number: US-CELGENEUS-USA-2016103048

PATIENT
  Age: 72 Year
  Sex: Male

DRUGS (6)
  1. CARFILZOMIB [Suspect]
     Active Substance: CARFILZOMIB
     Indication: PLASMA CELL MYELOMA
     Route: 065
  2. CARFILZOMIB [Suspect]
     Active Substance: CARFILZOMIB
     Route: 065
  3. CYCLOPHOSPHAMIDE. [Suspect]
     Active Substance: CYCLOPHOSPHAMIDE
     Indication: PLASMA CELL MYELOMA
     Route: 048
  4. THALOMID [Suspect]
     Active Substance: THALIDOMIDE
     Indication: PLASMA CELL MYELOMA
     Route: 048
  5. CARFILZOMIB [Suspect]
     Active Substance: CARFILZOMIB
     Route: 041
  6. PREDNISONE. [Suspect]
     Active Substance: PREDNISONE
     Indication: PLASMA CELL MYELOMA
     Route: 065

REACTIONS (6)
  - Cough [Unknown]
  - Oedema peripheral [Unknown]
  - Cardiac failure congestive [Unknown]
  - Dyspnoea [Unknown]
  - Pulmonary arterial hypertension [Unknown]
  - Haemophilus infection [Unknown]
